FAERS Safety Report 20972126 (Version 2)
Quarter: 2023Q1

REPORT INFORMATION
  Report Type: Spontaneous
  Country: US (occurrence: US)
  Receive Date: 20220616
  Receipt Date: 20230228
  Transmission Date: 20230418
  Serious: No
  Sender: FDA-Public Use
  Company Number: US-SA-SAC20220613001924

PATIENT
  Age: 59 Year
  Sex: Male

DRUGS (3)
  1. DUPIXENT [Suspect]
     Active Substance: DUPILUMAB
     Indication: Seborrhoeic dermatitis
     Dosage: 300 MG, QOW
     Route: 058
     Dates: start: 20211130, end: 20220114
  2. DUPIXENT [Suspect]
     Active Substance: DUPILUMAB
     Dosage: 300 MG, QOW
     Route: 058
     Dates: start: 2022
  3. TRIAMCINOLONE [Concomitant]
     Active Substance: TRIAMCINOLONE

REACTIONS (2)
  - Dermatitis atopic [Not Recovered/Not Resolved]
  - Drug ineffective for unapproved indication [Unknown]
